FAERS Safety Report 7247790-0 (Version None)
Quarter: 2011Q1

REPORT INFORMATION
  Report Type: 
  Country: None (occurrence: None)
  Receive Date: 20110127
  Receipt Date: 20110118
  Transmission Date: 20110831
  Serious: Yes (Life-Threatening, Hospitalization, Other)
  Sender: FDA-Public Use
  Company Number: US-ELI_LILLY_AND_COMPANY-US201101004464

PATIENT
  Age: 88 Year
  Sex: Female

DRUGS (11)
  1. ZYPREXA [Suspect]
     Dosage: 5 MG, EACH EVENING
  2. PROTONIX [Concomitant]
     Dosage: 40 MG, DAILY (1/D)
     Route: 042
  3. AMBIEN [Concomitant]
     Dosage: 5 MG, EACH EVENING
  4. NYSTATIN [Concomitant]
     Dosage: UNK, 2/D
  5. LOVENOX [Concomitant]
     Dosage: 30 MG, DAILY (1/D)
     Route: 058
  6. DOCUSATE [Concomitant]
     Dosage: 100 MG, 2/D
  7. PLAVIX [Concomitant]
     Dosage: 75 MG, DAILY (1/D)
  8. CEFEPIME [Concomitant]
     Dosage: 1 G, 4/D
  9. CYMBALTA [Suspect]
     Indication: DEPRESSION
  10. DONEPEZIL HCL [Concomitant]
     Dosage: 10 MG, DAILY (1/D)
  11. SERTRALINE HYDROCHLORIDE [Concomitant]
     Dosage: 50 MG, EACH EVENING

REACTIONS (4)
  - SEDATION [None]
  - PNEUMONIA [None]
  - APHAGIA [None]
  - RESPIRATORY FAILURE [None]
